FAERS Safety Report 4382362-7 (Version None)
Quarter: 2004Q2

REPORT INFORMATION
  Report Type: 
  Country: None (occurrence: None)
  Receive Date: 20040621
  Receipt Date: 20040621
  Transmission Date: 20050107
  Serious: Yes (Disabling)
  Sender: FDA-Public Use
  Company Number: None

PATIENT
  Age: 48 Year
  Sex: Male
  Weight: 83.9154 kg

DRUGS (3)
  1. BUDEPRION SR  100MG  TEVA PHARM [Suspect]
     Indication: DEPRESSION
     Dosage: 2 TABLET 2X PER DAY ORAL
     Route: 048
     Dates: start: 20040604, end: 20040620
  2. BUDEPRION SR  100MG  TEVA PHARM [Suspect]
     Indication: FIBROMYALGIA
     Dosage: 2 TABLET 2X PER DAY ORAL
     Route: 048
     Dates: start: 20040604, end: 20040620
  3. ELAVIL-AMITRIPTYLIN- [Concomitant]

REACTIONS (5)
  - ANGER [None]
  - DEPRESSION [None]
  - DRUG EFFECT DECREASED [None]
  - IRRITABILITY [None]
  - PHARMACEUTICAL PRODUCT COMPLAINT [None]
